FAERS Safety Report 7192677-5 (Version None)
Quarter: 2010Q4

REPORT INFORMATION
  Report Type: 
  Country: None (occurrence: None)
  Receive Date: 20101223
  Receipt Date: 20100826
  Transmission Date: 20110411
  Serious: No
  Sender: FDA-Public Use
  Company Number: US-AMGEN-KDL434331

PATIENT

DRUGS (2)
  1. ENBREL [Suspect]
     Indication: RHEUMATOID ARTHRITIS
     Dosage: 50 MG, 2 TIMES/WK
     Route: 058
     Dates: start: 20050501
  2. ENBREL [Suspect]
     Indication: PSORIASIS

REACTIONS (6)
  - ARTHROPOD BITE [None]
  - INFECTED BITES [None]
  - INFLUENZA LIKE ILLNESS [None]
  - JOINT SWELLING [None]
  - PAIN IN EXTREMITY [None]
  - PSORIASIS [None]
